FAERS Safety Report 20671452 (Version 1)
Quarter: 2022Q2

REPORT INFORMATION
  Report Type: Report from Study
  Country: RU (occurrence: RU)
  Receive Date: 20220404
  Receipt Date: 20220404
  Transmission Date: 20220721
  Serious: Yes (Other)
  Sender: FDA-Public Use
  Company Number: RU-ALLERGAN-2210753US

PATIENT

DRUGS (1)
  1. DEXAMETHASONE [Suspect]
     Active Substance: DEXAMETHASONE
     Indication: Macular oedema
     Dosage: 0.7 MG, SINGLE
     Route: 031

REACTIONS (5)
  - Macular oedema [Recovered/Resolved]
  - Disease progression [Recovered/Resolved]
  - Cataract [Recovered/Resolved]
  - Intraocular pressure increased [Recovered/Resolved]
  - Drug ineffective [Unknown]
